FAERS Safety Report 18559528 (Version 9)
Quarter: 2023Q1

REPORT INFORMATION
  Report Type: Spontaneous
  Country: US (occurrence: US)
  Receive Date: 20201130
  Receipt Date: 20230329
  Transmission Date: 20230417
  Serious: Yes (Other)
  Sender: FDA-Public Use
  Company Number: US-PFIZER INC-2020085494

PATIENT
  Sex: Female
  Weight: 102 kg

DRUGS (6)
  1. PREMARIN [Suspect]
     Active Substance: ESTROGENS, CONJUGATED
     Indication: Vulvovaginal dryness
     Dosage: UNK (THREE TIMES A WEEK)
  2. PREMARIN [Suspect]
     Active Substance: ESTROGENS, CONJUGATED
     Indication: Prophylaxis urinary tract infection
     Dosage: 1 G  (THREE TIMES A WEEK)
     Route: 067
  3. PREMARIN [Suspect]
     Active Substance: ESTROGENS, CONJUGATED
     Dosage: 2 G  (3 TIMES A WEEK)
     Route: 067
  4. PREMARIN [Suspect]
     Active Substance: ESTROGENS, CONJUGATED
     Dosage: 2 G [INSERT 2GMS VAGINALLY, 3 TIMES A WEEK]
     Route: 067
  5. PREMARIN [Suspect]
     Active Substance: ESTROGENS, CONJUGATED
     Dosage: 2 MG [THREE TIMES A WEEK]
  6. CEPHALEXIN [Concomitant]
     Active Substance: CEPHALEXIN
     Indication: Antibiotic therapy
     Dosage: 250 MG, 1X/DAY
     Dates: start: 2013

REACTIONS (7)
  - Urinary tract infection [Not Recovered/Not Resolved]
  - Blood urine [Unknown]
  - Device issue [Unknown]
  - Renal cancer [Unknown]
  - Nephrolithiasis [Recovered/Resolved]
  - Intentional product misuse [Unknown]
  - Off label use [Unknown]
